FAERS Safety Report 5029205-6 (Version None)
Quarter: 2006Q2

REPORT INFORMATION
  Report Type: 
  Country: None (occurrence: None)
  Receive Date: 20060616
  Receipt Date: 20060616
  Transmission Date: 20061013
  Serious: No
  Sender: FDA-Public Use
  Company Number: None

PATIENT
  Age: 58 Year
  Sex: Female
  Weight: 58.9676 kg

DRUGS (1)
  1. HYDROXYZINE HCL [Suspect]
     Indication: ALLERGY TO ARTHROPOD BITE
     Dosage: 10 MG  4XDAY  PO
     Route: 048
     Dates: start: 20060613, end: 20060615

REACTIONS (2)
  - DRUG INEFFECTIVE [None]
  - PHARMACEUTICAL PRODUCT COMPLAINT [None]
